FAERS Safety Report 5375368-2 (Version None)
Quarter: 2007Q2

REPORT INFORMATION
  Report Type: 
  Country: None (occurrence: None)
  Receive Date: 20070629
  Receipt Date: 20070618
  Transmission Date: 20071010
  Serious: Yes (Death, Hospitalization)
  Sender: FDA-Public Use
  Company Number: JP-PFIZER INC-2005137041

PATIENT
  Sex: Male
  Weight: 60 kg

DRUGS (4)
  1. IRINOTECAN HCL [Suspect]
     Indication: RECTAL CANCER
     Dosage: DAILY DOSE:120MG
     Route: 042
     Dates: start: 20050813, end: 20050827
  2. TEGAFUR [Suspect]
     Indication: RECTAL CANCER
     Route: 048
     Dates: start: 20050813, end: 20050826
  3. LOXOPROFEN SODIUM [Concomitant]
     Route: 048
     Dates: start: 20050903, end: 20050903
  4. GABEXATE MESILATE [Concomitant]
     Route: 042
     Dates: start: 20050909, end: 20051027

REACTIONS (3)
  - ACUTE RESPIRATORY DISTRESS SYNDROME [None]
  - INTERSTITIAL LUNG DISEASE [None]
  - THROMBOCYTOPENIA [None]
